FAERS Safety Report 4309620-6 (Version None)
Quarter: 2004Q1

REPORT INFORMATION
  Report Type: 
  Country: None (occurrence: None)
  Receive Date: 20040302
  Receipt Date: 20031204
  Transmission Date: 20041129
  Serious: Yes (Hospitalization)
  Sender: FDA-Public Use
  Company Number: WAES 0312GBR00070

PATIENT
  Age: 84 Year
  Sex: Female
  Weight: 75 kg

DRUGS (13)
  1. ACETAMINOPHEN [Concomitant]
  2. ASPIRIN [Concomitant]
     Indication: ANGINA PECTORIS
     Route: 048
  3. BUMETANIDE [Concomitant]
     Indication: CARDIAC FAILURE
     Route: 048
  4. CALCIUM CARBONATE AND CHOLECALCIFEROL [Concomitant]
     Route: 048
  5. DOCUSATE SODIUM [Concomitant]
  6. LACTULOSE [Concomitant]
  7. NICORANDIL [Concomitant]
     Indication: ANGINA PECTORIS
     Route: 048
  8. RAMIPRIL [Concomitant]
     Indication: CARDIAC FAILURE
  9. RANITIDINE [Concomitant]
     Indication: DYSPEPSIA
     Route: 048
  10. VIOXX [Suspect]
     Indication: OSTEOARTHRITIS
     Route: 048
     Dates: start: 20030804, end: 20030813
  11. VIOXX [Suspect]
     Route: 048
     Dates: start: 20030814, end: 20030818
  12. SPIRONOLACTONE [Concomitant]
     Indication: CARDIAC FAILURE
     Route: 048
  13. TRAMADOL HYDROCHLORIDE [Concomitant]

REACTIONS (3)
  - BLOOD ALKALINE PHOSPHATASE INCREASED [None]
  - GAMMA-GLUTAMYLTRANSFERASE INCREASED [None]
  - LIVER FUNCTION TEST ABNORMAL [None]
